FAERS Safety Report 9645246 (Version 3)
Quarter: 2013Q4

REPORT INFORMATION
  Report Type: Spontaneous
  Country: FR (occurrence: FR)
  Receive Date: 20131025
  Receipt Date: 20131106
  Transmission Date: 20140711
  Serious: Yes (Other)
  Sender: FDA-Public Use
  Company Number: FR-009507513-1310FRA003042

PATIENT
  Sex: Female
  Weight: 106 kg

DRUGS (4)
  1. NEXPLANON [Suspect]
     Indication: CONTRACEPTION
     Dosage: UNK
     Dates: start: 20110627
  2. NEXPLANON [Suspect]
     Dosage: UNK
     Route: 059
     Dates: start: 20130718
  3. RISPERDAL [Concomitant]
     Indication: PSYCHOTIC DISORDER
     Dosage: 25 MG, BIM
     Route: 030
     Dates: start: 2006
  4. LYSANXIA [Concomitant]
     Indication: PSYCHOTIC DISORDER
     Dosage: 10 MG, TID
     Route: 048
     Dates: start: 2006

REACTIONS (2)
  - Obesity [Not Recovered/Not Resolved]
  - Medical device complication [Recovered/Resolved]
